FAERS Safety Report 4370781-4 (Version None)
Quarter: 2004Q2

REPORT INFORMATION
  Report Type: 
  Country: None (occurrence: None)
  Receive Date: 20040603
  Receipt Date: 20040603
  Transmission Date: 20050107
  Serious: Yes (Hospitalization)
  Sender: FDA-Public Use
  Company Number: None

PATIENT
  Age: 77 Year
  Sex: Female
  Weight: 57.2 kg

DRUGS (9)
  1. INTEGRILIN [Suspect]
     Indication: ANTIPLATELET THERAPY
     Dosage: 2 (5 ML BOLUSES) 4.5 ML/HR IV
     Route: 042
     Dates: start: 20040527, end: 20040528
  2. HEPARIN [Suspect]
     Indication: ANTICOAGULANT THERAPY
     Dosage: 2865 UNIT IV
     Route: 042
     Dates: start: 20040527
  3. MIDAZOLAM HCL [Concomitant]
  4. FENTANYL [Concomitant]
  5. NITROGLYCERIN [Concomitant]
  6. ASPIRIN [Concomitant]
  7. CLOPIDOGREL BISULFATE [Concomitant]
  8. PEPCID [Concomitant]
  9. ACETYLCYSTEINE [Concomitant]

REACTIONS (6)
  - BLOOD PRESSURE DECREASED [None]
  - CATHETER SITE HAEMORRHAGE [None]
  - CATHETER SITE RELATED REACTION [None]
  - LABORATORY TEST ABNORMAL [None]
  - SKIN LACERATION [None]
  - THROMBOCYTOPENIA [None]
